FAERS Safety Report 6960837-1 (Version None)
Quarter: 2010Q3

REPORT INFORMATION
  Report Type: 
  Country: None (occurrence: None)
  Receive Date: 20100830
  Receipt Date: 20100811
  Transmission Date: 20110219
  Serious: No
  Sender: FDA-Public Use
  Company Number: APP201000649

PATIENT
  Age: 7 Year
  Sex: Male

DRUGS (1)
  1. PENTAM [Suspect]
     Indication: PRODUCT USED FOR UNKNOWN INDICATION
     Dosage: 100 MG ONCE, INTRAVENOUS
     Route: 042
     Dates: start: 20100620, end: 20100620

REACTIONS (5)
  - COLD SWEAT [None]
  - DYSPNOEA [None]
  - PALLOR [None]
  - PRURITUS [None]
  - TACHYCARDIA [None]
